FAERS Safety Report 7586654-X (Version None)
Quarter: 2011Q3

REPORT INFORMATION
  Report Type: 
  Country: None (occurrence: None)
  Receive Date: 20110701
  Receipt Date: 20110620
  Transmission Date: 20111222
  Serious: Yes (Hospitalization, Other)
  Sender: FDA-Public Use
  Company Number: KR-ELI_LILLY_AND_COMPANY-KR201104008011

PATIENT
  Age: 79 Year
  Sex: Male
  Weight: 55 kg

DRUGS (3)
  1. HUMALOG [Suspect]
     Indication: TYPE 2 DIABETES MELLITUS
     Dosage: 6 IU, TID
     Dates: start: 20110301
  2. ASPIRIN [Concomitant]
  3. ANTIHYPERTENSIVES [Concomitant]

REACTIONS (1)
  - CEREBRAL INFARCTION [None]
